FAERS Safety Report 9433036 (Version 1)
Quarter: 2013Q3

REPORT INFORMATION
  Report Type: Spontaneous
  Country: US (occurrence: US)
  Receive Date: 20130731
  Receipt Date: 20130731
  Transmission Date: 20140515
  Serious: Yes (Death, Other)
  Sender: FDA-Public Use
  Company Number: US-JNJFOC-20130717929

PATIENT
  Age: 59 Year
  Sex: Male

DRUGS (5)
  1. CLADRIBINE [Suspect]
     Indication: ACUTE MYELOID LEUKAEMIA
     Dosage: FOR 5 DAYS
     Route: 042
  2. THIOTEPA [Suspect]
     Indication: ACUTE MYELOID LEUKAEMIA
     Route: 065
  3. THIOTEPA [Suspect]
     Indication: ACUTE MYELOID LEUKAEMIA
     Dosage: FOR 3 DAYS
     Route: 065
  4. RABBIT ANTITHYMOCYTE GLOBULIN [Suspect]
     Indication: ACUTE MYELOID LEUKAEMIA
     Dosage: DAY 5
     Route: 065
  5. GRANULOCYTE-COLONY STIMULATING FACTOR [Concomitant]
     Route: 065

REACTIONS (5)
  - Acute myeloid leukaemia recurrent [Fatal]
  - Neutropenia [Unknown]
  - Thrombocytopenia [Unknown]
  - Anaemia [Unknown]
  - Off label use [Unknown]
